FAERS Safety Report 4959455-6 (Version None)
Quarter: 2006Q1

REPORT INFORMATION
  Report Type: 
  Country: None (occurrence: None)
  Receive Date: 20060331
  Receipt Date: 20050929
  Transmission Date: 20060701
  Serious: Yes (Hospitalization, Disabling, Other)
  Sender: FDA-Public Use
  Company Number: US-MERCK-0510USA00536

PATIENT
  Age: 46 Year
  Sex: Female
  Weight: 89 kg

DRUGS (16)
  1. VIOXX [Suspect]
     Indication: BACK PAIN
     Route: 048
     Dates: start: 19990101, end: 20040101
  2. PREMARIN [Concomitant]
     Route: 065
  3. SYNTHROID [Concomitant]
     Route: 065
  4. HYDROCHLOROTHIAZIDE [Concomitant]
     Route: 065
  5. PREVACID [Concomitant]
     Route: 065
  6. ASPIRIN [Concomitant]
     Route: 065
  7. PROZAC [Concomitant]
     Route: 065
  8. TOPROL-XL [Concomitant]
     Route: 065
  9. ZESTRIL [Concomitant]
     Route: 065
  10. TEMAZEPAM [Concomitant]
     Route: 065
  11. ALPRAZOLAM [Concomitant]
     Route: 065
  12. NITROGLYCERIN [Concomitant]
     Route: 065
  13. PLAVIX [Concomitant]
     Route: 065
  14. WELLBUTRIN [Concomitant]
     Route: 065
  15. VICODIN [Concomitant]
     Route: 065
  16. VIOXX [Suspect]
     Route: 048
     Dates: start: 19990101, end: 20040101

REACTIONS (8)
  - ANGINA PECTORIS [None]
  - ATRIOVENTRICULAR BLOCK [None]
  - BACK INJURY [None]
  - BLOOD PRESSURE INCREASED [None]
  - CARDIAC DISORDER [None]
  - CHEST PAIN [None]
  - JOINT INJURY [None]
  - MYOCARDIAL INFARCTION [None]
